FAERS Safety Report 13448384 (Version 6)
Quarter: 2018Q3

REPORT INFORMATION
  Report Type: Report from Study
  Country: BR (occurrence: BR)
  Receive Date: 20170417
  Receipt Date: 20180730
  Transmission Date: 20181010
  Serious: Yes (Hospitalization, Other)
  Sender: FDA-Public Use
  Company Number: BR-JNJFOC-20170324058

PATIENT
  Age: 72 Year
  Sex: Female
  Weight: 65 kg

DRUGS (11)
  1. PREDNISONE. [Concomitant]
     Active Substance: PREDNISONE
     Route: 065
  2. OMEPRAZOLE. [Concomitant]
     Active Substance: OMEPRAZOLE
     Route: 065
  3. LOSARTAN. [Concomitant]
     Active Substance: LOSARTAN
     Route: 065
  4. IPRATROPIO [Concomitant]
     Active Substance: IPRATROPIUM BROMIDE
     Route: 065
  5. SALBUTAMOL [Concomitant]
     Active Substance: ALBUTEROL
     Route: 065
  6. SIMPONI [Suspect]
     Active Substance: GOLIMUMAB
     Indication: RHEUMATOID ARTHRITIS
     Route: 058
  7. SIMPONI [Suspect]
     Active Substance: GOLIMUMAB
     Indication: RHEUMATOID ARTHRITIS
     Route: 058
     Dates: start: 20160627
  8. FOLIC ACID. [Concomitant]
     Active Substance: FOLIC ACID
     Route: 065
  9. VITAMIN B COMPLEX [Concomitant]
     Active Substance: CYANOCOBALAMIN\DEXPANTHENOL\NIACINAMIDE\PYRIDOXINE HYDROCHLORIDE\RIBOFLAVIN 5^-PHOSPHATE SODIUM\THIAMINE HYDROCHLORIDE\VITAMIN B COMPLEX
     Route: 065
  10. ALINIA [Concomitant]
     Active Substance: NITAZOXANIDE
     Route: 065
  11. FENOTEROL [Concomitant]
     Active Substance: FENOTEROL
     Route: 065

REACTIONS (11)
  - Influenza [Unknown]
  - Product use issue [Unknown]
  - Respiratory disorder [Unknown]
  - Pain in extremity [Unknown]
  - Furuncle [Unknown]
  - General physical health deterioration [Unknown]
  - Off label use [Unknown]
  - Pneumonia [Unknown]
  - Application site haemorrhage [Recovering/Resolving]
  - Tuberculosis [Unknown]
  - Obstructive airways disorder [Unknown]

NARRATIVE: CASE EVENT DATE: 201704
